FAERS Safety Report 9096069 (Version 3)
Quarter: 2013Q1

REPORT INFORMATION
  Report Type: Report from Study
  Country: US (occurrence: US)
  Receive Date: 20130207
  Receipt Date: 20130328
  Transmission Date: 20140127
  Serious: Yes (Hospitalization)
  Sender: FDA-Public Use
  Company Number: US-ACTELION-A-NJ2013-77448

PATIENT
  Age: 62 Year
  Sex: Female

DRUGS (2)
  1. TRACLEER [Suspect]
     Indication: PULMONARY ARTERIAL HYPERTENSION
     Dosage: 62.5 MG, BID
     Route: 048
     Dates: start: 20121210, end: 20121231
  2. SILDENAFIL [Concomitant]

REACTIONS (6)
  - Electrolyte imbalance [Recovering/Resolving]
  - Autoimmune haemolytic anaemia [Recovering/Resolving]
  - Haemoglobin decreased [Recovering/Resolving]
  - Condition aggravated [Recovering/Resolving]
  - Packed red blood cell transfusion [Recovering/Resolving]
  - Platelet count decreased [Recovering/Resolving]
